FAERS Safety Report 6966262-1 (Version None)
Quarter: 2010Q3

REPORT INFORMATION
  Report Type: 
  Country: None (occurrence: None)
  Receive Date: 20100903
  Receipt Date: 20100823
  Transmission Date: 20110219
  Serious: Yes (Hospitalization, Other)
  Sender: FDA-Public Use
  Company Number: US-ELI_LILLY_AND_COMPANY-US201008007464

PATIENT
  Sex: Female

DRUGS (12)
  1. FORTEO [Suspect]
     Indication: OSTEOPOROSIS
     Dosage: 20 UG, DAILY (1/D)
     Dates: start: 20100819, end: 20100821
  2. ELMIRON [Concomitant]
  3. IRON [Concomitant]
  4. NEXIUM [Concomitant]
  5. GLIPIZIDE [Concomitant]
  6. ZESTRIL [Concomitant]
  7. TAMSULOSIN HCL [Concomitant]
  8. ASPIRINE BAYER [Concomitant]
  9. NORVASC [Concomitant]
  10. LORTAB [Concomitant]
  11. ADVIL PM                           /05810501/ [Concomitant]
  12. PRESERVISION LUTEIN EYE VITA.+MIN.SUP.SOFTG. [Concomitant]

REACTIONS (5)
  - BLOOD GLUCOSE INCREASED [None]
  - BLOOD POTASSIUM DECREASED [None]
  - BLOOD SODIUM DECREASED [None]
  - FALL [None]
  - UPPER LIMB FRACTURE [None]
